FAERS Safety Report 5819213-7 (Version None)
Quarter: 2008Q3

REPORT INFORMATION
  Report Type: 
  Country: None (occurrence: None)
  Receive Date: 20080721
  Receipt Date: 20080721
  Transmission Date: 20090109
  Serious: No
  Sender: FDA-Public Use
  Company Number: None

PATIENT
  Age: 82 Year
  Sex: Male

DRUGS (2)
  1. INSULIN [Suspect]
     Indication: DIABETES MELLITUS
     Dosage: BID SQ
     Route: 058
     Dates: start: 20080609, end: 20080715
  2. INSULIN [Suspect]
     Indication: DIABETES MELLITUS
     Dosage: BID SQ
     Route: 058
     Dates: start: 20080609, end: 20080715

REACTIONS (5)
  - ASTHENIA [None]
  - HYPOGLYCAEMIA [None]
  - LOSS OF CONSCIOUSNESS [None]
  - MALAISE [None]
  - TREATMENT NONCOMPLIANCE [None]
